FAERS Safety Report 18425206 (Version 1)
Quarter: 2020Q4

REPORT INFORMATION
  Report Type: Spontaneous
  Country: US (occurrence: US)
  Receive Date: 20201025
  Receipt Date: 20201025
  Transmission Date: 20210114
  Serious: No
  Sender: FDA-Public Use
  Company Number: None

PATIENT
  Age: 20 Year
  Sex: Male
  Weight: 89.4 kg

DRUGS (5)
  1. EUA REMDESIVIR [Suspect]
     Active Substance: REMDESIVIR
     Indication: COVID-19
     Route: 042
     Dates: start: 20201017, end: 20201019
  2. DECADRON [Concomitant]
     Active Substance: DEXAMETHASONE
     Dates: start: 20201015, end: 20201022
  3. PEPCID [Concomitant]
     Active Substance: FAMOTIDINE
     Dates: start: 20201015, end: 20201022
  4. ENOXAPARIN [Concomitant]
     Active Substance: ENOXAPARIN
     Dates: start: 20201015, end: 20201023
  5. TYLENOL [Concomitant]
     Active Substance: ACETAMINOPHEN
     Dates: start: 20201015, end: 20201017

REACTIONS (2)
  - Hepatic enzyme increased [None]
  - Aspartate aminotransferase increased [None]

NARRATIVE: CASE EVENT DATE: 20201021
